FAERS Safety Report 13447674 (Version 1)
Quarter: 2017Q2

REPORT INFORMATION
  Report Type: Spontaneous
  Country: US (occurrence: US)
  Receive Date: 20170414
  Receipt Date: 20170414
  Transmission Date: 20170830
  Serious: Yes (Hospitalization)
  Sender: FDA-Public Use
  Company Number: None

PATIENT
  Age: 69 Year
  Sex: Male

DRUGS (1)
  1. OMEPRAZOLE. [Suspect]
     Active Substance: OMEPRAZOLE
     Route: 048
     Dates: start: 20131216, end: 20170207

REACTIONS (5)
  - Chronic kidney disease [None]
  - Tubulointerstitial nephritis [None]
  - Arteriosclerosis [None]
  - Cellulitis [None]
  - Angioedema [None]

NARRATIVE: CASE EVENT DATE: 20170207
